FAERS Safety Report 8472091-2 (Version None)
Quarter: 2012Q2

REPORT INFORMATION
  Report Type: 
  Country: None (occurrence: None)
  Receive Date: 20120323
  Receipt Date: 20111130
  Transmission Date: 20120825
  Serious: Yes (Death, Hospitalization)
  Sender: FDA-Public Use
  Company Number: 163-21880-11090174

PATIENT
  Age: 84 Year
  Sex: Female

DRUGS (10)
  1. REVLIMID [Suspect]
     Indication: MULTIPLE MYELOMA
     Dosage: 15 MG, DAILY DAYS 1-21/28 DAY CYCLE, PO
     Route: 048
     Dates: start: 20100701, end: 20110801
  2. LISINOPRIL /HCTZ (PRINZIDE)(UNKNOWN) [Concomitant]
  3. OCUSATE (DOCUSATE)(UNKNOWN) [Concomitant]
  4. PERCOCET [Concomitant]
  5. DEXAMETHASONE [Concomitant]
  6. OSCAL + VITAMIN D(CALCIUM CARBONATE)(UNKNOWN) [Concomitant]
  7. FOSAMAX (ALENDRONATE SODIUM)(UNKNOWN) [Concomitant]
  8. POTASSIUM (POTASSIUM)(UNKNOWN) [Concomitant]
  9. METOCLOPRAMIDE [Concomitant]
  10. ASPIRIN [Concomitant]

REACTIONS (3)
  - ACUTE RESPIRATORY FAILURE [None]
  - CEREBROVASCULAR ACCIDENT [None]
  - ATRIAL FIBRILLATION [None]
